FAERS Safety Report 9817339 (Version 2)
Quarter: 2014Q1

REPORT INFORMATION
  Report Type: Report from Study
  Country: ZA (occurrence: ZA)
  Receive Date: 20140115
  Receipt Date: 20140115
  Transmission Date: 20141002
  Serious: Yes (Death, Hospitalization)
  Sender: FDA-Public Use
  Company Number: ZA-ROCHE-1270943

PATIENT
  Age: 84 Year
  Sex: Male

DRUGS (4)
  1. MIRCERA [Suspect]
     Indication: NEPHROGENIC ANAEMIA
     Route: 058
     Dates: start: 20120223
  2. MIRCERA [Suspect]
     Route: 058
     Dates: start: 20121130
  3. MIRCERA [Suspect]
     Route: 058
     Dates: start: 20131125
  4. INSULIN [Concomitant]

REACTIONS (2)
  - Disease progression [Fatal]
  - Pneumonia [Unknown]
